FAERS Safety Report 18192234 (Version 4)
Quarter: 2021Q1

REPORT INFORMATION
  Report Type: Spontaneous
  Country: US (occurrence: US)
  Receive Date: 20200825
  Receipt Date: 20210202
  Transmission Date: 20210419
  Serious: No
  Sender: FDA-Public Use
  Company Number: US-PFIZER INC-2020326890

PATIENT
  Age: 46 Year
  Sex: Female

DRUGS (2)
  1. XELJANZ XR [Suspect]
     Active Substance: TOFACITINIB CITRATE
     Dosage: 11 MG, UNK
     Dates: start: 20210125, end: 20210125
  2. XELJANZ XR [Suspect]
     Active Substance: TOFACITINIB CITRATE
     Dosage: 11 MG, UNK
     Dates: start: 20200515, end: 20201116

REACTIONS (10)
  - Therapeutic product effect incomplete [Unknown]
  - Urinary tract infection [Unknown]
  - Hypersensitivity [Unknown]
  - Sunburn [Unknown]
  - Exposure to SARS-CoV-2 [Unknown]
  - Therapeutic response unexpected [Unknown]
  - Renal pain [Unknown]
  - Rash [Unknown]
  - Product dose omission in error [Unknown]
  - Blister [Unknown]
